FAERS Safety Report 22183461 (Version 2)
Quarter: 2023Q2

REPORT INFORMATION
  Report Type: Report from Study
  Country: PL (occurrence: PL)
  Receive Date: 20230406
  Receipt Date: 20230417
  Transmission Date: 20230722
  Serious: Yes (Hospitalization)
  Sender: FDA-Public Use
  Company Number: PL-TAKEDA-2023TUS034988

PATIENT
  Sex: Male

DRUGS (22)
  1. IDURSULFASE [Suspect]
     Active Substance: IDURSULFASE
     Indication: Mucopolysaccharidosis II
     Dosage: 0.5 MILLIGRAM/KILOGRAM, 1/WEEK
     Route: 042
     Dates: start: 20091203
  2. PROBIOTICS NOS [Concomitant]
     Active Substance: PROBIOTICS NOS
     Indication: Gastrointestinal disorder
     Dosage: UNK
     Route: 048
     Dates: start: 2009
  3. SOYFEM [Concomitant]
     Indication: Mucopolysaccharidosis
     Dosage: UNK
     Route: 048
     Dates: start: 2009
  4. Dormicum [Concomitant]
     Dosage: UNK
     Route: 048
     Dates: start: 20090617, end: 20090617
  5. FENICORT [Concomitant]
     Dosage: UNK
     Route: 042
     Dates: start: 20090617, end: 20090617
  6. Fentanylum [Concomitant]
     Dosage: UNK
     Route: 042
     Dates: start: 20090617, end: 20090617
  7. PAVULON [Concomitant]
     Active Substance: PANCURONIUM BROMIDE
     Dosage: UNK
     Route: 042
     Dates: start: 20090617, end: 20090617
  8. THIOPENTAL [Concomitant]
     Active Substance: THIOPENTAL
     Dosage: UNK
     Route: 042
     Dates: start: 20090617, end: 20090617
  9. DEXAMETHASONE [Concomitant]
     Active Substance: DEXAMETHASONE
     Dosage: UNK
     Route: 042
     Dates: start: 20090617, end: 20090617
  10. PERFALGAN [Concomitant]
     Active Substance: ACETAMINOPHEN
     Dosage: UNK
     Route: 042
     Dates: start: 20090617, end: 20090618
  11. MEPERIDINE [Concomitant]
     Active Substance: MEPERIDINE
     Dosage: UNK
     Route: 042
     Dates: start: 20090617, end: 20090618
  12. FUROSEMIDE [Concomitant]
     Active Substance: FUROSEMIDE
     Indication: Diuretic therapy
     Dosage: UNK
     Route: 065
     Dates: start: 20090617, end: 20090617
  13. LOSEC [Concomitant]
     Active Substance: OMEPRAZOLE
     Dosage: UNK
     Route: 048
     Dates: start: 20090617, end: 20090617
  14. CLEMASTINE [Concomitant]
     Active Substance: CLEMASTINE
     Dosage: UNK
     Route: 065
     Dates: start: 20100128
  15. HYDROCORTISONE [Concomitant]
     Active Substance: HYDROCORTISONE
     Dosage: UNK
     Route: 065
     Dates: start: 20100128
  16. CALCIUM [Concomitant]
     Active Substance: CALCIUM
     Dosage: UNK
     Route: 048
     Dates: start: 20100128
  17. LACTOBACILLUS PLANTARUM [Concomitant]
     Active Substance: LACTOBACILLUS PLANTARUM
     Dosage: UNK
     Route: 048
     Dates: start: 20100512, end: 20100514
  18. LACTOBACILLUS PLANTARUM [Concomitant]
     Active Substance: LACTOBACILLUS PLANTARUM
     Dosage: UNK
     Route: 048
     Dates: start: 20101216, end: 20101216
  19. ENOXAPARIN SODIUM [Concomitant]
     Active Substance: ENOXAPARIN SODIUM
     Dosage: UNK
     Route: 050
     Dates: start: 20220813, end: 20220817
  20. ACETAMINOPHEN [Concomitant]
     Active Substance: ACETAMINOPHEN
     Dosage: UNK
     Route: 050
     Dates: start: 20220813, end: 20220817
  21. TRAMADOL [Concomitant]
     Active Substance: TRAMADOL
     Dosage: UNK
     Route: 050
     Dates: start: 20220813, end: 20220817
  22. ONDANSETRON [Concomitant]
     Active Substance: ONDANSETRON
     Dosage: UNK
     Route: 050
     Dates: start: 20220813, end: 20220817

REACTIONS (1)
  - Post-traumatic pain [Recovered/Resolved]

NARRATIVE: CASE EVENT DATE: 20220813
